FAERS Safety Report 8384107-2 (Version None)
Quarter: 2012Q2

REPORT INFORMATION
  Report Type: 
  Country: None (occurrence: None)
  Receive Date: 20120524
  Receipt Date: 20120521
  Transmission Date: 20120825
  Serious: Yes (Other)
  Sender: FDA-Public Use
  Company Number: PHHY2008BR29784

PATIENT
  Sex: Female
  Weight: 60 kg

DRUGS (5)
  1. TEGRETOL-XR [Suspect]
     Dosage: 400 MG, Q8H
     Route: 048
  2. DEPAKOTE [Concomitant]
     Indication: PETIT MAL EPILEPSY
     Dosage: 500 MG, TWO TABLETS DAILY
  3. PHENOBARBITAL TAB [Concomitant]
     Dosage: 50 MG, Q8H
  4. TEGRETOL-XR [Suspect]
     Indication: PETIT MAL EPILEPSY
     Dosage: 200 MG, UNK
     Route: 048
     Dates: start: 19980101
  5. TEGRETOL-XR [Suspect]
     Dosage: 1300 MG/ DAY
     Route: 048

REACTIONS (12)
  - MUSCULAR WEAKNESS [None]
  - BALANCE DISORDER [None]
  - DIPLOPIA [None]
  - PARAESTHESIA [None]
  - OEDEMA PERIPHERAL [None]
  - MEMORY IMPAIRMENT [None]
  - DIZZINESS [None]
  - DRUG INEFFECTIVE [None]
  - SKIN HYPERPIGMENTATION [None]
  - SOMNOLENCE [None]
  - JOINT SWELLING [None]
  - PETIT MAL EPILEPSY [None]
